FAERS Safety Report 22339398 (Version 1)
Quarter: 2023Q2

REPORT INFORMATION
  Report Type: Spontaneous
  Country: CN (occurrence: CN)
  Receive Date: 20230518
  Receipt Date: 20230518
  Transmission Date: 20230721
  Serious: Yes (Other)
  Sender: FDA-Public Use
  Company Number: CN-PFIZER INC-PV202300085952

PATIENT
  Age: 2 Year
  Sex: Female

DRUGS (3)
  1. EPIRUBICIN HYDROCHLORIDE [Suspect]
     Active Substance: EPIRUBICIN HYDROCHLORIDE
     Indication: Neuroblastoma
     Dosage: 25 MG/M2, 1X/DAY (D1-3)
     Route: 041
     Dates: start: 20230422, end: 20230422
  2. CYCLOPHOSPHAMIDE [Suspect]
     Active Substance: CYCLOPHOSPHAMIDE
     Indication: Neuroblastoma
     Dosage: 0.2 G, 1X/DAY (2100 MG/M2 D1-2)
     Route: 041
     Dates: start: 20230422, end: 20230422
  3. VINCRISTINE SULFATE [Suspect]
     Active Substance: VINCRISTINE SULFATE
     Indication: Neuroblastoma
     Dosage: 0.67 MG/M2, 1X/DAY (D1-3)
     Route: 041
     Dates: start: 20230422, end: 20230422

REACTIONS (7)
  - Granulocyte count decreased [Recovering/Resolving]
  - Reticulocyte count increased [Unknown]
  - White blood cell count decreased [Unknown]
  - Red blood cell count decreased [Unknown]
  - Haemoglobin decreased [Unknown]
  - Platelet count decreased [Unknown]
  - Off label use [Unknown]

NARRATIVE: CASE EVENT DATE: 20230422
